FAERS Safety Report 8809727 (Version 2)
Quarter: 2014Q3

REPORT INFORMATION
  Report Type: Report from Study
  Country: US (occurrence: US)
  Receive Date: 20120926
  Receipt Date: 20140829
  Transmission Date: 20150326
  Serious: Yes (Death, Other)
  Sender: FDA-Public Use
  Company Number: US-ROCHE-1126883

PATIENT
  Sex: Male
  Weight: 86 kg

DRUGS (4)
  1. AVASTIN [Suspect]
     Active Substance: BEVACIZUMAB
     Indication: COLON CANCER
     Route: 042
     Dates: start: 200407
  2. ERBITUX [Concomitant]
     Active Substance: CETUXIMAB
     Route: 065
     Dates: start: 20050317
  3. AVASTIN [Suspect]
     Active Substance: BEVACIZUMAB
     Indication: COLON CANCER
  4. AVASTIN [Suspect]
     Active Substance: BEVACIZUMAB
     Indication: COLORECTAL CANCER

REACTIONS (5)
  - Lymphatic obstruction [Unknown]
  - Oedema peripheral [Unknown]
  - Metastatic neoplasm [Unknown]
  - Disease progression [Unknown]
  - Death [Fatal]
